FAERS Safety Report 9445999 (Version 1)
Quarter: 2013Q3

REPORT INFORMATION
  Report Type: Spontaneous
  Country: FR (occurrence: FR)
  Receive Date: 20130807
  Receipt Date: 20130807
  Transmission Date: 20140515
  Serious: Yes (Other)
  Sender: FDA-Public Use
  Company Number: ALCN2013FR003987

PATIENT
  Age: 67 Year
  Sex: Female

DRUGS (1)
  1. TOBRADEX [Suspect]
     Indication: POSTOPERATIVE CARE
     Dosage: 1 GTT, TID
     Route: 047

REACTIONS (1)
  - Ulcerative keratitis [Recovered/Resolved]
